FAERS Safety Report 8161353-4 (Version None)
Quarter: 2012Q1

REPORT INFORMATION
  Report Type: 
  Country: None (occurrence: None)
  Receive Date: 20120222
  Receipt Date: 20120222
  Transmission Date: 20120608
  Serious: No
  Sender: FDA-Public Use
  Company Number: None

PATIENT
  Sex: Female

DRUGS (9)
  1. AFINITOR [Suspect]
     Indication: BREAST CANCER FEMALE
     Dosage: 10MG DAILY BY MOUTH
     Route: 048
     Dates: start: 20120207, end: 20120217
  2. ONDANSETRON [Concomitant]
  3. THYROID TAB [Concomitant]
  4. VENLAFAXINE HCL EXTENDED-RELEASE [Concomitant]
  5. AROMASIN [Concomitant]
  6. LEVOTHYROXINE SODIUM [Concomitant]
  7. CLONAZEPAM [Concomitant]
  8. TAMOXIFEN CITRATE [Concomitant]
  9. AMBIEN CR [Concomitant]

REACTIONS (2)
  - VOMITING [None]
  - ABDOMINAL PAIN UPPER [None]
